FAERS Safety Report 4482544-X (Version None)
Quarter: 2004Q4

REPORT INFORMATION
  Report Type: 
  Country: None (occurrence: None)
  Receive Date: 20041022
  Receipt Date: 20041008
  Transmission Date: 20050328
  Serious: Yes (Hospitalization)
  Sender: FDA-Public Use
  Company Number: 200413149JP

PATIENT
  Sex: Female

DRUGS (2)
  1. TAXOTERE [Suspect]
     Indication: OVARIAN CANCER
     Route: 041
     Dates: start: 20040929, end: 20040929
  2. CARBOPLATIN [Concomitant]
     Indication: OVARIAN CANCER
     Dosage: DOSE: AUC5
     Route: 041
     Dates: start: 20040929, end: 20040929

REACTIONS (4)
  - C-REACTIVE PROTEIN INCREASED [None]
  - HEPATIC FUNCTION ABNORMAL [None]
  - PAIN [None]
  - PAIN IN EXTREMITY [None]
